FAERS Safety Report 6491721-8 (Version None)
Quarter: 2009Q4

REPORT INFORMATION
  Report Type: 
  Country: None (occurrence: None)
  Receive Date: 20091208
  Receipt Date: 20091124
  Transmission Date: 20100525
  Serious: Yes (Other)
  Sender: FDA-Public Use
  Company Number: PAR_03265_2009

PATIENT
  Age: 35 Year
  Sex: Male

DRUGS (1)
  1. CABERGOLINE (CABERGOLINE) 1 MG [Suspect]
     Indication: PARKINSON'S DISEASE
     Dosage: (1 MG QD)

REACTIONS (2)
  - MITRAL VALVE INCOMPETENCE [None]
  - PALPITATIONS [None]
